FAERS Safety Report 18118935 (Version 1)
Quarter: 2020Q3

REPORT INFORMATION
  Report Type: Spontaneous
  Country: US (occurrence: US)
  Receive Date: 20200806
  Receipt Date: 20200806
  Transmission Date: 20201103
  Serious: Yes (Hospitalization)
  Sender: FDA-Public Use
  Company Number: US-PFIZER INC-2020298601

PATIENT
  Age: 68 Year
  Sex: Female
  Weight: 100.68 kg

DRUGS (1)
  1. IBRANCE [Suspect]
     Active Substance: PALBOCICLIB
     Indication: BREAST CANCER FEMALE
     Dosage: 75 MG, CYCLIC (DAILY 21 DAYS)
     Route: 048
     Dates: start: 2017

REACTIONS (3)
  - Gastrointestinal disorder [Unknown]
  - Neoplasm progression [Unknown]
  - Fatigue [Unknown]
